FAERS Safety Report 8997342 (Version 2)
Quarter: 2013Q1

REPORT INFORMATION
  Report Type: Spontaneous
  Country: DE (occurrence: DE)
  Receive Date: 20130104
  Receipt Date: 20130109
  Transmission Date: 20140127
  Serious: Yes (Hospitalization, Other)
  Sender: FDA-Public Use
  Company Number: DE-US-EMD SERONO, INC.-7185018

PATIENT
  Age: 35 Year
  Sex: Female

DRUGS (1)
  1. REBIF [Suspect]
     Indication: RELAPSING-REMITTING MULTIPLE SCLEROSIS
     Route: 058
     Dates: start: 20091013

REACTIONS (6)
  - Multiple sclerosis relapse [Recovered/Resolved]
  - Tunnel vision [Recovered/Resolved]
  - Haemoglobin decreased [Unknown]
  - Blood sodium decreased [Unknown]
  - Blood creatine phosphokinase increased [Unknown]
  - Blood thyroid stimulating hormone increased [Unknown]
